FAERS Safety Report 17157556 (Version 3)
Quarter: 2020Q1

REPORT INFORMATION
  Report Type: Spontaneous
  Country: US (occurrence: US)
  Receive Date: 20191216
  Receipt Date: 20200120
  Transmission Date: 20200409
  Serious: Yes (Hospitalization, Other)
  Sender: FDA-Public Use
  Company Number: US-009507513-1912USA004820

PATIENT
  Sex: Female
  Weight: 149.66 kg

DRUGS (2)
  1. PROVENTIL [Suspect]
     Active Substance: ALBUTEROL
     Indication: LUNG DISORDER
     Dosage: 2 PUFFS, Q6H AS NEEDED
     Route: 055
     Dates: start: 20191101
  2. PROVENTIL [Suspect]
     Active Substance: ALBUTEROL
     Indication: ASTHMA
     Dosage: 2 PUFFS, Q6H AS NEEDED
     Route: 055
     Dates: start: 2003

REACTIONS (4)
  - Pneumonia [Unknown]
  - Asthma [Unknown]
  - Product quality issue [Unknown]
  - Poor quality device used [Unknown]

NARRATIVE: CASE EVENT DATE: 2019
